FAERS Safety Report 10885203 (Version 1)
Quarter: 2015Q1

REPORT INFORMATION
  Report Type: Spontaneous
  Country: US (occurrence: US)
  Receive Date: 20150304
  Receipt Date: 20150304
  Transmission Date: 20150721
  Serious: Yes (Death)
  Sender: FDA-Public Use
  Company Number: US-BANPHARM-20153620

PATIENT
  Age: 2 Year
  Sex: Female

DRUGS (1)
  1. DIPHENHYDRAMINE UNKNOWN PRODUCT [Suspect]
     Active Substance: DIPHENHYDRAMINE

REACTIONS (10)
  - Blood pH decreased [None]
  - Vomiting [None]
  - Death [Fatal]
  - Ventricular tachycardia [None]
  - Somnolence [None]
  - Ventricular extrasystoles [None]
  - Irritability [None]
  - Electrocardiogram ST segment elevation [None]
  - Bradycardia [None]
  - Seizure [None]
